FAERS Safety Report 25877005 (Version 1)
Quarter: 2025Q4

REPORT INFORMATION
  Report Type: Report from Study
  Country: US (occurrence: US)
  Receive Date: 20251003
  Receipt Date: 20251003
  Transmission Date: 20260118
  Serious: Yes (Other)
  Sender: ALEXION PHARMACEUTICALS
  Company Number: US-AstraZeneca-CH-00959134A

PATIENT
  Sex: Male

DRUGS (3)
  1. SOLIRIS [Suspect]
     Active Substance: ECULIZUMAB
     Indication: Myasthenia gravis
     Dosage: UNK
  2. MESTINON [Concomitant]
     Active Substance: PYRIDOSTIGMINE BROMIDE
     Dosage: 180 MILLIGRAM, TID
     Route: 065
  3. CELLCEPT [Concomitant]
     Active Substance: MYCOPHENOLATE MOFETIL
     Dosage: UNK, BID
     Route: 065

REACTIONS (17)
  - Large intestinal obstruction [Unknown]
  - Diplopia [Unknown]
  - Sleep apnoea syndrome [Unknown]
  - Dyspnoea [Unknown]
  - Mastication disorder [Unknown]
  - Dysphagia [Unknown]
  - Nerve injury [Unknown]
  - Abdominal discomfort [Unknown]
  - Illness [Unknown]
  - Asthenia [Unknown]
  - Poor quality sleep [Unknown]
  - Initial insomnia [Unknown]
  - Tongue movement disturbance [Unknown]
  - Visual impairment [Unknown]
  - Abdominal pain upper [Unknown]
  - Pain [Unknown]
  - Drug ineffective [Unknown]
